FAERS Safety Report 14514962 (Version 1)
Quarter: 2018Q1

REPORT INFORMATION
  Report Type: Spontaneous
  Country: US (occurrence: US)
  Receive Date: 20180208
  Receipt Date: 20180208
  Transmission Date: 20180509
  Serious: Yes (Hospitalization)
  Sender: FDA-Public Use
  Company Number: None

PATIENT
  Age: 52 Year
  Sex: Male

DRUGS (1)
  1. CAPECITABINE  500 MG WEST-WARD [Suspect]
     Active Substance: CAPECITABINE
     Indication: RECTAL CANCER
     Route: 048
     Dates: start: 20180125

REACTIONS (4)
  - Abdominal pain upper [None]
  - Weight decreased [None]
  - Vomiting [None]
  - Eating disorder [None]

NARRATIVE: CASE EVENT DATE: 20180125
